FAERS Safety Report 12839836 (Version 1)
Quarter: 2016Q4

REPORT INFORMATION
  Report Type: Spontaneous
  Country: US (occurrence: US)
  Receive Date: 20161012
  Receipt Date: 20161012
  Transmission Date: 20170207
  Serious: No
  Sender: FDA-Public Use
  Company Number: US-SHIRE-US201614462

PATIENT
  Age: 52 Year
  Sex: Female
  Weight: 88.44 kg

DRUGS (6)
  1. WELLBUTRIN [Concomitant]
     Active Substance: BUPROPION HYDROCHLORIDE
     Indication: PRODUCT USED FOR UNKNOWN INDICATION
     Dosage: UNK, 1X/DAY:QD
     Route: 065
  2. RANITIDINE. [Concomitant]
     Active Substance: RANITIDINE
     Indication: DYSPEPSIA
     Dosage: UNK, 1X/DAY:QD
     Route: 065
  3. LIALDA [Suspect]
     Active Substance: MESALAMINE
     Indication: COLITIS ULCERATIVE
     Dosage: 4.8 G, 1X/DAY:QD; REPORTED 4 TABLETS 1.2G ONCE DAILY PO
     Route: 048
     Dates: start: 20160929, end: 20160930
  4. LIALDA [Suspect]
     Active Substance: MESALAMINE
     Dosage: 1.2 G, 2X/DAY:BID; REPORTED 1 TABLET 1.2G BID PO
     Route: 048
     Dates: start: 20161001, end: 20161003
  5. LIALDA [Suspect]
     Active Substance: MESALAMINE
     Dosage: 2.4 G, 1X/DAY:QD; REPORTED 2 TABLETS 1.2G ONCE DAILY PO
     Route: 048
     Dates: start: 20161003
  6. LIALDA [Suspect]
     Active Substance: MESALAMINE
     Dosage: 2.4 G, 1X/DAY:QD; REPORTED 2 TABLETS 1.2G ONCE DAILY PO
     Route: 048
     Dates: start: 20160930, end: 20161001

REACTIONS (5)
  - Abdominal pain [Not Recovered/Not Resolved]
  - Eye pruritus [Recovered/Resolved]
  - Paraesthesia [Recovered/Resolved]
  - Abdominal distension [Not Recovered/Not Resolved]
  - Inappropriate schedule of drug administration [Recovered/Resolved]

NARRATIVE: CASE EVENT DATE: 20160929
